FAERS Safety Report 9205232 (Version 1)
Quarter: 2013Q2

REPORT INFORMATION
  Report Type: Spontaneous
  Country: US (occurrence: US)
  Receive Date: 20130402
  Receipt Date: 20130402
  Transmission Date: 20140414
  Serious: Yes (Hospitalization)
  Sender: FDA-Public Use
  Company Number: PHEH2012US009926

PATIENT
  Sex: Female

DRUGS (4)
  1. ZOMETA [Suspect]
     Indication: BONE CANCER
     Route: 042
     Dates: end: 201109
  2. GABAPENTIN [Concomitant]
     Indication: HYPOAESTHESIA
     Dosage: 300 MG, BID
     Route: 048
  3. HYDROCODONE W/ACETAMINOPHEN [Concomitant]
     Indication: PAIN
     Dosage: 325 MG, QID
     Route: 048
  4. CHEMOTHERAPEUTICS NOS [Concomitant]

REACTIONS (2)
  - Osteoporosis [Unknown]
  - Impaired healing [Unknown]
